FAERS Safety Report 6525427-3 (Version None)
Quarter: 2009Q4

REPORT INFORMATION
  Report Type: 
  Country: None (occurrence: None)
  Receive Date: 20091222
  Receipt Date: 20091209
  Transmission Date: 20100525
  Serious: Yes (Other)
  Sender: FDA-Public Use
  Company Number: 1000010794

PATIENT
  Age: 48 Year
  Sex: Female

DRUGS (2)
  1. ESCITALOPRAM [Suspect]
     Indication: DEPRESSION
     Dosage: 0.5 DOSAGE FORMS (0.5 DOSAGE FORMS, 1 IN 1 D), ORAL
     Route: 048
  2. TERBINAFINE [Suspect]
     Indication: ONYCHOMYCOSIS
     Dosage: (1 DOSAGE FORMS, 1 IN 1 D), ORAL
     Route: 048

REACTIONS (1)
  - CATARACT [None]
